FAERS Safety Report 19698112 (Version 1)
Quarter: 2021Q3

REPORT INFORMATION
  Report Type: Spontaneous
  Country: FR (occurrence: FR)
  Receive Date: 20210813
  Receipt Date: 20210813
  Transmission Date: 20211014
  Serious: Yes (Hospitalization)
  Sender: FDA-Public Use
  Company Number: FR-TEVA-2021-FR-1940829

PATIENT
  Age: 65 Year
  Sex: Female
  Weight: 60 kg

DRUGS (13)
  1. DARZALEX [Suspect]
     Active Substance: DARATUMUMAB
     Indication: PLASMA CELL MYELOMA
     Dosage: 920 MG
     Route: 041
     Dates: start: 20210210, end: 20210329
  2. MIRTAZAPINE. [Suspect]
     Active Substance: MIRTAZAPINE
     Indication: DEPRESSION
     Dosage: 30 MG
     Route: 048
  3. CHLORHYDRATE D^OXYCODONE [Suspect]
     Active Substance: OXYCODONE HYDROCHLORIDE
     Indication: PAIN
     Dosage: 140 MG
     Route: 048
  4. ACIDE FOLINIQUE [Suspect]
     Active Substance: LEUCOVORIN
     Indication: VITAMIN SUPPLEMENTATION
     Dosage: 5 MG
     Route: 048
  5. ACEPONATE D^HYDROCORTISONE [Suspect]
     Active Substance: HYDROCORTISONE ACEPONATE
     Indication: SECONDARY ADRENOCORTICAL INSUFFICIENCY
     Dosage: 30 MG
     Route: 048
  6. ACETATE DE DEXAMETHASONE [Suspect]
     Active Substance: DEXAMETHASONE ACETATE
     Indication: CRYOGLOBULINAEMIA
  7. TRIMETHOPRIME [Suspect]
     Active Substance: TRIMETHOPRIM
     Indication: OPPORTUNISTIC INFECTION PROPHYLAXIS
     Dosage: 160 MG
     Route: 048
  8. KYPROLIS [Suspect]
     Active Substance: CARFILZOMIB
     Indication: CRYOGLOBULINAEMIA
  9. SULFAMETHOXAZOLE [Suspect]
     Active Substance: SULFAMETHOXAZOLE
     Indication: OPPORTUNISTIC INFECTION PROPHYLAXIS
     Dosage: 800 MG
     Route: 048
  10. DARZALEX [Suspect]
     Active Substance: DARATUMUMAB
     Indication: CRYOGLOBULINAEMIA
     Dosage: 1800 MG
     Route: 058
     Dates: start: 20210413
  11. ACETATE DE DEXAMETHASONE [Suspect]
     Active Substance: DEXAMETHASONE ACETATE
     Indication: PLASMA CELL MYELOMA
     Route: 041
     Dates: start: 20210118, end: 202103
  12. SERESTA [Suspect]
     Active Substance: OXAZEPAM
     Indication: ANXIETY
     Dosage: 80 MG
     Route: 048
  13. KYPROLIS [Suspect]
     Active Substance: CARFILZOMIB
     Indication: PLASMA CELL MYELOMA
     Dosage: J1, J2 AND J8, J9, 86 MG
     Route: 041
     Dates: start: 20210118, end: 20210323

REACTIONS (1)
  - Uveitis [Not Recovered/Not Resolved]

NARRATIVE: CASE EVENT DATE: 202104
